FAERS Safety Report 8490335-8 (Version None)
Quarter: 2012Q3

REPORT INFORMATION
  Report Type: 
  Country: None (occurrence: None)
  Receive Date: 20120705
  Receipt Date: 20120702
  Transmission Date: 20120928
  Serious: Yes (Death)
  Sender: FDA-Public Use
  Company Number: VE-PFIZER INC-2012152067

PATIENT
  Age: 77 Year
  Sex: Male

DRUGS (1)
  1. LIPITOR [Suspect]
     Dosage: UNK, ONCE DAILY
     Route: 048
     Dates: start: 20110101, end: 20120101

REACTIONS (2)
  - LUNG NEOPLASM MALIGNANT [None]
  - METASTASES TO PROSTATE [None]
